FAERS Safety Report 8924044 (Version 1)
Quarter: 2012Q4

REPORT INFORMATION
  Report Type: Spontaneous
  Country: US (occurrence: None)
  Receive Date: 20121121
  Receipt Date: 20121121
  Transmission Date: 20130627
  Serious: Yes (Hospitalization)
  Sender: FDA-Public Use
  Company Number: None

PATIENT
  Age: 59 Year
  Sex: Male

DRUGS (1)
  1. ZYTIGA [Suspect]
     Indication: MALIGNANT NEOPLASM OF PROSTATE
     Route: 048
     Dates: start: 20120220, end: 20121119

REACTIONS (1)
  - Tachycardia [None]
